FAERS Safety Report 22528959 (Version 1)
Quarter: 2023Q2

REPORT INFORMATION
  Report Type: Spontaneous
  Country: US (occurrence: US)
  Receive Date: 20230607
  Receipt Date: 20230607
  Transmission Date: 20230721
  Serious: No
  Sender: FDA-Public Use
  Company Number: US-STRIDES ARCOLAB LIMITED-2022SP006092

PATIENT
  Age: 19 Year
  Sex: Female

DRUGS (1)
  1. HYDROCORTISONE [Suspect]
     Active Substance: HYDROCORTISONE
     Indication: Lip dry
     Dosage: UNK, LIP BALM
     Route: 061

REACTIONS (2)
  - Cortisol increased [Recovered/Resolved]
  - Off label use [Unknown]
